FAERS Safety Report 7377937-7 (Version None)
Quarter: 2011Q1

REPORT INFORMATION
  Report Type: 
  Country: None (occurrence: None)
  Receive Date: 20110328
  Receipt Date: 20110322
  Transmission Date: 20110831
  Serious: Yes (Disabling, Other)
  Sender: FDA-Public Use
  Company Number: CA-PFIZER INC-2009175724

PATIENT
  Age: 51 Year
  Sex: Female
  Weight: 85.261 kg

DRUGS (13)
  1. APO-CLONAZEPAM [Concomitant]
     Dosage: 0.5 MG, 3X/DAY
  2. RABEPRAZOLE SODIUM [Concomitant]
     Dosage: 20 MG, 1X/DAY
  3. CIPRALEX [Concomitant]
     Dosage: 20 MG, 1X/DAY IN THE MORNING
  4. APO-BACLOFEN [Concomitant]
     Dosage: 20 MG, 3X/DAY
  5. LYRICA [Suspect]
     Indication: NEURALGIA
     Dosage: 150 MG, 2X/DAY
     Route: 048
     Dates: start: 20060701
  6. PREMARIN [Concomitant]
     Dosage: 0.625 MG, 1X/DAY
  7. DILAUDID [Concomitant]
     Dosage: 16 MG, EVERY 4 HRS
  8. SYNTHROID [Concomitant]
     Dosage: 0.125 MG, 1X/DAY
  9. APO-TRAZODONE [Concomitant]
     Dosage: 50 MG, 1X/DAY AT BEDTIME
  10. ZOPICLONE [Concomitant]
     Dosage: 15 MG, 1X/DAY
  11. LYRICA [Suspect]
     Indication: BACK PAIN
     Dosage: 150 MG, 4X/DAY
     Dates: end: 20090101
  12. APO-AMITRIPTYLINE [Concomitant]
     Dosage: 50 MG, TWO TABLETS AT BEDTIME
  13. WELLBUTRIN [Concomitant]
     Dosage: 300 MG, 1X/DAY IN THE MORNING

REACTIONS (17)
  - DYSTONIA [None]
  - OEDEMA PERIPHERAL [None]
  - ERYTHEMA [None]
  - SKIN DISCOLOURATION [None]
  - SWELLING FACE [None]
  - NEURALGIA [None]
  - URINE OUTPUT DECREASED [None]
  - DYSPNOEA [None]
  - WEIGHT INCREASED [None]
  - MUSCLE SPASTICITY [None]
  - GAIT DISTURBANCE [None]
  - CARDIAC DISORDER [None]
  - BREAST ENLARGEMENT [None]
  - WITHDRAWAL SYNDROME [None]
  - FATIGUE [None]
  - HYPERHIDROSIS [None]
  - BACK PAIN [None]
